FAERS Safety Report 5150484-9 (Version None)
Quarter: 2006Q4

REPORT INFORMATION
  Report Type: 
  Country: None (occurrence: None)
  Receive Date: 20061109
  Receipt Date: 20061109
  Transmission Date: 20070319
  Serious: Yes (Hospitalization)
  Sender: FDA-Public Use
  Company Number: None

PATIENT
  Sex: Female
  Weight: 55 kg

DRUGS (8)
  1. BEVACIZUMAB (RHUMAB VEGF) [Suspect]
     Dosage: 274 MG
  2. CAMPTOSAR [Suspect]
     Dosage: 233 MG
  3. ELOXATIN [Suspect]
     Dosage: 132 MG
  4. ALOXI [Concomitant]
  5. ARANESP [Concomitant]
  6. DEXAMETHASONE TAB [Concomitant]
  7. IMODIUM [Concomitant]
  8. KYTRIL [Concomitant]

REACTIONS (11)
  - AGRANULOCYTOSIS [None]
  - ANOREXIA [None]
  - ASTHENIA [None]
  - CANDIDIASIS [None]
  - DEHYDRATION [None]
  - DIARRHOEA [None]
  - FATIGUE [None]
  - LUNG INFILTRATION [None]
  - PLEURAL EFFUSION [None]
  - RESPIRATORY DISTRESS [None]
  - WHITE BLOOD CELL COUNT DECREASED [None]
